FAERS Safety Report 9853253 (Version 1)
Quarter: 2014Q1

REPORT INFORMATION
  Report Type: Spontaneous
  Country: IN (occurrence: IN)
  Receive Date: 20140129
  Receipt Date: 20140129
  Transmission Date: 20141002
  Serious: Yes (Other)
  Sender: FDA-Public Use
  Company Number: PHHY2014IN008983

PATIENT
  Age: 12 Year
  Sex: Male

DRUGS (2)
  1. BETAMETHASONE [Suspect]
     Indication: UVEITIS
  2. HOMATROPINE [Suspect]
     Indication: UVEITIS

REACTIONS (2)
  - Optic neuritis [Unknown]
  - Drug ineffective [Unknown]
